FAERS Safety Report 17821021 (Version 2)
Quarter: 2020Q2

REPORT INFORMATION
  Report Type: Report from Study
  Country: US (occurrence: US)
  Receive Date: 20200525
  Receipt Date: 20200529
  Transmission Date: 20200714
  Serious: Yes (Other)
  Sender: FDA-Public Use
  Company Number: US-ROCHE-2604864

PATIENT
  Sex: Female

DRUGS (10)
  1. POTASSIUM CHLORIDE. [Concomitant]
     Active Substance: POTASSIUM CHLORIDE
  2. METOPROLOL. [Concomitant]
     Active Substance: METOPROLOL
  3. ACTEMRA [Suspect]
     Active Substance: TOCILIZUMAB
     Indication: DIABETES INSIPIDUS
     Route: 058
  4. LOSARTAN. [Concomitant]
     Active Substance: LOSARTAN
  5. ATORVASTATIN [Concomitant]
     Active Substance: ATORVASTATIN
  6. EPINEPHRINE. [Concomitant]
     Active Substance: EPINEPHRINE
  7. ASPIRIN [ACETYLSALICYLIC ACID] [Concomitant]
     Active Substance: ASPIRIN
  8. INSULIN [Concomitant]
     Active Substance: INSULIN NOS
  9. FUROSEMIDE. [Concomitant]
     Active Substance: FUROSEMIDE
  10. PREDNISONE. [Concomitant]
     Active Substance: PREDNISONE

REACTIONS (3)
  - Blood glucose increased [Unknown]
  - Off label use [Unknown]
  - Intentional product use issue [Unknown]
